FAERS Safety Report 10289182 (Version 2)
Quarter: 2014Q3

REPORT INFORMATION
  Report Type: Spontaneous
  Country: BR (occurrence: BR)
  Receive Date: 20140710
  Receipt Date: 20140716
  Transmission Date: 20150326
  Serious: Yes (Hospitalization, Disabling, Other)
  Sender: FDA-Public Use
  Company Number: BR-ROCHE-1430234

PATIENT
  Sex: Female
  Weight: 83 kg

DRUGS (6)
  1. HYZAAR [Concomitant]
     Active Substance: HYDROCHLOROTHIAZIDE\LOSARTAN POTASSIUM
     Indication: BLOOD PRESSURE ABNORMAL
     Dosage: 50/12.5 MG
     Route: 048
     Dates: start: 201403
  2. ZELBORAF [Suspect]
     Active Substance: VEMURAFENIB
     Indication: MALIGNANT MELANOMA
     Dosage: AT 10 AM AND AT 10 PM
     Route: 048
     Dates: start: 20140501
  3. OMEPRAZOLE. [Concomitant]
     Active Substance: OMEPRAZOLE
     Indication: GASTRIC DISORDER
     Dosage: UNDER FASTING
     Route: 048
  4. PARACETAMOL [Concomitant]
     Active Substance: ACETAMINOPHEN
     Indication: PAIN
     Route: 048
  5. CODEINE [Concomitant]
     Active Substance: CODEINE
     Indication: PAIN
     Route: 048
  6. DOMPERIDONE [Concomitant]
     Active Substance: DOMPERIDONE
     Dosage: A TABLET BEFORE LUNCH AND ONE BEFORE DINNER
     Route: 048

REACTIONS (11)
  - Disease progression [Not Recovered/Not Resolved]
  - Nodule [Recovered/Resolved]
  - Dysstasia [Unknown]
  - Back pain [Unknown]
  - Urinary tract infection [Unknown]
  - Haematological malignancy [Not Recovered/Not Resolved]
  - Mass [Recovered/Resolved]
  - Acne [Recovered/Resolved]
  - Sensory loss [Unknown]
  - Erythema [Recovered/Resolved]
  - Hypoaesthesia [Unknown]
